FAERS Safety Report 23207803 (Version 1)
Quarter: 2023Q4

REPORT INFORMATION
  Report Type: Spontaneous
  Country: US (occurrence: US)
  Receive Date: 20231121
  Receipt Date: 20231121
  Transmission Date: 20240110
  Serious: No
  Sender: FDA-Public Use
  Company Number: US-drreddys-SPO/USA/23/0181943

PATIENT
  Age: 17 Year

DRUGS (1)
  1. ZENATANE [Suspect]
     Active Substance: ISOTRETINOIN
     Indication: Acne
     Dosage: RMA ISSUE DATE: 17 JULY 2023 01:48:32 PM, 17 AUGUST 2023 02:52:55 PM, 18 SEPTEMBER 2023 06:34:34 PM

REACTIONS (1)
  - Therapy cessation [Unknown]
